FAERS Safety Report 19242503 (Version 1)
Quarter: 2021Q2

REPORT INFORMATION
  Report Type: Spontaneous
  Country: US (occurrence: US)
  Receive Date: 20210510
  Receipt Date: 20210510
  Transmission Date: 20210717
  Serious: No
  Sender: FDA-Public Use
  Company Number: US-ANAZAOHEALTH CORPORATION-2110399

PATIENT
  Age: 71 Year
  Sex: Female
  Weight: 86.36 kg

DRUGS (16)
  1. ESTRADIOL 12.5 MG PELLET [Suspect]
     Active Substance: ESTRADIOL
     Route: 058
     Dates: start: 20210330
  2. TESTOSTERONE. [Concomitant]
     Active Substance: TESTOSTERONE
     Route: 058
     Dates: start: 20200903
  3. TESTOSTERONE. [Concomitant]
     Active Substance: TESTOSTERONE
     Route: 058
     Dates: start: 20191001
  4. TESTOSTERONE. [Concomitant]
     Active Substance: TESTOSTERONE
     Route: 058
     Dates: start: 20190418
  5. TESTOSTERONE. [Concomitant]
     Active Substance: TESTOSTERONE
     Route: 058
     Dates: start: 20210330
  6. TESTOSTERONE. [Concomitant]
     Active Substance: TESTOSTERONE
     Route: 058
     Dates: start: 20200903
  7. ESTRADIOL. [Concomitant]
     Active Substance: ESTRADIOL
     Route: 058
     Dates: start: 20200903
  8. TESTOSTERONE. [Concomitant]
     Active Substance: TESTOSTERONE
     Route: 058
     Dates: start: 20191001
  9. ESTRADIOL. [Concomitant]
     Active Substance: ESTRADIOL
     Route: 058
     Dates: start: 20191001
  10. TESTOSTERONE. [Concomitant]
     Active Substance: TESTOSTERONE
     Route: 058
     Dates: start: 20201029
  11. TESTOSTERONE. [Concomitant]
     Active Substance: TESTOSTERONE
     Route: 058
     Dates: start: 20200319
  12. TESTOSTERONE. [Concomitant]
     Active Substance: TESTOSTERONE
     Route: 058
     Dates: start: 20200319
  13. TESTOSTERONE. [Concomitant]
     Active Substance: TESTOSTERONE
     Route: 058
     Dates: start: 20190418
  14. ESTRADIOL. [Concomitant]
     Active Substance: ESTRADIOL
     Route: 058
     Dates: start: 20190418
  15. TESTOSTERONE. [Concomitant]
     Active Substance: TESTOSTERONE
     Route: 058
     Dates: start: 20210330
  16. ESTRADIOL. [Concomitant]
     Active Substance: ESTRADIOL
     Route: 058
     Dates: start: 20200319

REACTIONS (1)
  - Breast cancer [Unknown]

NARRATIVE: CASE EVENT DATE: 20210414
